FAERS Safety Report 5244174-1 (Version None)
Quarter: 2007Q1

REPORT INFORMATION
  Report Type: 
  Country: None (occurrence: None)
  Receive Date: 20070222
  Receipt Date: 20070216
  Transmission Date: 20070707
  Serious: Yes (Other)
  Sender: FDA-Public Use
  Company Number: US-GLAXOSMITHKLINE-A0640040A

PATIENT
  Age: 54 Year
  Sex: Female

DRUGS (5)
  1. LAMICTAL [Suspect]
     Indication: BIPOLAR DISORDER
     Dosage: 200MG TWICE PER DAY
     Route: 048
  2. NEURONTIN [Concomitant]
  3. SYNTHROID [Concomitant]
  4. BREWERS YEAST [Concomitant]
  5. GARLIC [Concomitant]

REACTIONS (1)
  - BREAST CANCER [None]
